FAERS Safety Report 14909707 (Version 2)
Quarter: 2018Q2

REPORT INFORMATION
  Report Type: Spontaneous
  Country: US (occurrence: US)
  Receive Date: 20180517
  Receipt Date: 20180601
  Transmission Date: 20180711
  Serious: Yes (Hospitalization, Other)
  Sender: FDA-Public Use
  Company Number: US-GLAXOSMITHKLINE-US2018086783

PATIENT
  Sex: Male

DRUGS (3)
  1. SPIRIVA RESPIMAT [Concomitant]
     Active Substance: TIOTROPIUM BROMIDE
  2. BREO ELLIPTA [Suspect]
     Active Substance: FLUTICASONE FUROATE\VILANTEROL TRIFENATATE
     Indication: CHRONIC OBSTRUCTIVE PULMONARY DISEASE
     Dosage: 1 PUFF(S), QD
     Route: 055
     Dates: start: 2015
  3. ATENOLOL. [Concomitant]
     Active Substance: ATENOLOL

REACTIONS (13)
  - Intestinal resection [Recovered/Resolved]
  - Colectomy [Recovered/Resolved]
  - Gastric infection [Recovered/Resolved]
  - Weight decreased [Recovered/Resolved]
  - Muscle atrophy [Recovered/Resolved]
  - Asthenia [Recovered/Resolved]
  - Intensive care [Unknown]
  - Rehabilitation therapy [Recovered/Resolved]
  - Intestinal obstruction [Recovered/Resolved]
  - Volvulus of small bowel [Recovered/Resolved]
  - Gastric operation [Recovered/Resolved]
  - Intestinal perforation [Recovered/Resolved]
  - Gastrointestinal tube insertion [Recovered/Resolved]

NARRATIVE: CASE EVENT DATE: 2017
